FAERS Safety Report 24643162 (Version 1)
Quarter: 2024Q4

REPORT INFORMATION
  Report Type: Spontaneous
  Country: DE (occurrence: DE)
  Receive Date: 20241120
  Receipt Date: 20241120
  Transmission Date: 20250115
  Serious: Yes (Hospitalization)
  Sender: BAUSCH AND LOMB
  Company Number: DE-JNJFOC-20241119219

PATIENT
  Sex: Male

DRUGS (6)
  1. DEXAMETHASONE [Suspect]
     Active Substance: DEXAMETHASONE
     Indication: Plasma cell myeloma
     Route: 042
     Dates: start: 20230601, end: 20240919
  2. DEXAMETHASONE [Suspect]
     Active Substance: DEXAMETHASONE
     Route: 040
     Dates: start: 20241019
  3. DARZALEX [Suspect]
     Active Substance: DARATUMUMAB
     Indication: Plasma cell myeloma
     Route: 058
     Dates: start: 20230601, end: 20240919
  4. DARZALEX [Suspect]
     Active Substance: DARATUMUMAB
     Route: 058
     Dates: start: 20241019
  5. LENALIDOMIDE [Suspect]
     Active Substance: LENALIDOMIDE
     Indication: Plasma cell myeloma
     Route: 048
     Dates: start: 20230727, end: 20241009
  6. LENALIDOMIDE [Suspect]
     Active Substance: LENALIDOMIDE
     Route: 048
     Dates: start: 20241108

REACTIONS (4)
  - Cardiac failure [Recovering/Resolving]
  - Atrial fibrillation [Unknown]
  - Syncope [Unknown]
  - Bradyarrhythmia [Unknown]

NARRATIVE: CASE EVENT DATE: 20241016
